FAERS Safety Report 23251331 (Version 2)
Quarter: 2023Q4

REPORT INFORMATION
  Report Type: Spontaneous
  Country: GB (occurrence: GB)
  Receive Date: 20231201
  Receipt Date: 20231214
  Transmission Date: 20240109
  Serious: Yes (Congenital Anomaly, Other)
  Sender: FDA-Public Use
  Company Number: None

PATIENT
  Sex: Male

DRUGS (2)
  1. FLUOXETINE [Suspect]
     Active Substance: FLUOXETINE HYDROCHLORIDE
     Indication: Anxiety disorder
     Dosage: 20 MILLIGRAM, QD (AT NIGHT)
     Route: 064
     Dates: end: 20231110
  2. FOLIC ACID [Concomitant]
     Active Substance: FOLIC ACID
     Indication: Vitamin supplementation
     Dosage: 400 MICROGRAM
     Route: 064

REACTIONS (5)
  - Premature baby [Unknown]
  - Low birth weight baby [Unknown]
  - Tooth agenesis [Unknown]
  - Congenital anomaly [Not Recovered/Not Resolved]
  - Foetal exposure during pregnancy [Unknown]

NARRATIVE: CASE EVENT DATE: 20231110
